FAERS Safety Report 7627711 (Version 2)
Quarter: 2016Q3

REPORT INFORMATION
  Report Type: Spontaneous
  Country: US (occurrence: US)
  Receive Date: 20101013
  Receipt Date: 20160923
  Transmission Date: 20161109
  Serious: No
  Sender: FDA-Public Use
  Company Number: US-ASTRAZENECA-2010SE19725

PATIENT
  Age: 71 Year
  Sex: Female
  Weight: 90.7 kg

DRUGS (6)
  1. OXYCODONE [Concomitant]
     Active Substance: OXYCODONE
     Indication: BACK DISORDER
  2. SYMBICORT [Suspect]
     Active Substance: BUDESONIDE\FORMOTEROL FUMARATE DIHYDRATE
     Indication: PLEURAL EFFUSION
     Dosage: 160/4.5 1 PUFF
     Route: 055
  3. MORPHINE [Concomitant]
     Active Substance: MORPHINE
     Indication: BACK DISORDER
  4. MOVANTIK [Suspect]
     Active Substance: NALOXEGOL OXALATE
     Indication: CONSTIPATION
     Route: 048
     Dates: start: 201606
  5. SYNTHROID [Concomitant]
     Active Substance: LEVOTHYROXINE SODIUM
     Indication: THYROID DISORDER
  6. SYMBICORT [Suspect]
     Active Substance: BUDESONIDE\FORMOTEROL FUMARATE DIHYDRATE
     Indication: PLEURAL EFFUSION
     Dosage: 160/4.5 2 PUFFS
     Route: 055
     Dates: start: 2010

REACTIONS (4)
  - Drug dose omission [Unknown]
  - Intraocular pressure increased [Unknown]
  - Rectal haemorrhage [Unknown]
  - Drug ineffective [Unknown]

NARRATIVE: CASE EVENT DATE: 2010
